FAERS Safety Report 8799575 (Version 2)
Quarter: 2012Q4

REPORT INFORMATION
  Report Type: 
  Country: US (occurrence: US)
  Receive Date: 20120919
  Receipt Date: 20120924
  Transmission Date: 20130627
  Serious: No
  Sender: FDA-Public Use
  Company Number: US-PFIZER INC-2012228398

PATIENT
  Age: 58 Year
  Sex: Female
  Weight: 49.9 kg

DRUGS (1)
  1. PREMPHASE [Suspect]
     Indication: VAGINAL HAEMORRHAGE
     Dosage: 1 DF, 1x/day, ( 0.625 mg estrogens conjugated/5mg medroxyprogesterone acetate)
     Dates: start: 2006, end: 201209

REACTIONS (10)
  - Nightmare [Not Recovered/Not Resolved]
  - Asthenia [Unknown]
  - Terminal insomnia [Unknown]
  - Middle insomnia [Not Recovered/Not Resolved]
  - Anxiety [Not Recovered/Not Resolved]
  - Malaise [Not Recovered/Not Resolved]
  - Movement disorder [Not Recovered/Not Resolved]
  - Lethargy [Unknown]
  - Night sweats [Unknown]
  - Drug administration error [Recovered/Resolved]
